FAERS Safety Report 15424344 (Version 1)
Quarter: 2018Q3

REPORT INFORMATION
  Report Type: Spontaneous
  Country: US (occurrence: US)
  Receive Date: 20180925
  Receipt Date: 20180925
  Transmission Date: 20181010
  Serious: No
  Sender: FDA-Public Use
  Company Number: US-SA-2018SA265559

PATIENT
  Sex: Female

DRUGS (2)
  1. AUBAGIO [Suspect]
     Active Substance: TERIFLUNOMIDE
  2. MEMANTINE. [Suspect]
     Active Substance: MEMANTINE
     Dosage: 5 MG, TID

REACTIONS (1)
  - Feeling drunk [Not Recovered/Not Resolved]
